FAERS Safety Report 9510352 (Version 1)
Quarter: 2013Q3

REPORT INFORMATION
  Report Type: Spontaneous
  Country: US (occurrence: US)
  Receive Date: 20130909
  Receipt Date: 20130909
  Transmission Date: 20140515
  Serious: No
  Sender: FDA-Public Use
  Company Number: US-BRISTOL-MYERS SQUIBB COMPANY-17439456

PATIENT
  Age: 31 Year
  Sex: Male
  Weight: 94.78 kg

DRUGS (2)
  1. ABILIFY TABS 30 MG [Suspect]
     Indication: BIPOLAR I DISORDER
     Dosage: RESTARTED:OCT2012
     Route: 048
     Dates: start: 2008
  2. LAMICTAL [Concomitant]
     Dosage: NEXT 300MG

REACTIONS (1)
  - Restlessness [Unknown]
